FAERS Safety Report 21137581 (Version 1)
Quarter: 2022Q3

REPORT INFORMATION
  Report Type: Spontaneous
  Country: US (occurrence: US)
  Receive Date: 20220727
  Receipt Date: 20220727
  Transmission Date: 20221026
  Serious: No
  Sender: FDA-Public Use
  Company Number: US-VELOXIS PHARMACEUTCALS-2022VELUS-000069

PATIENT
  Age: 66 Year
  Sex: Female

DRUGS (3)
  1. ENVARSUS XR [Suspect]
     Active Substance: TACROLIMUS
     Indication: Product used for unknown indication
     Dosage: 5 MILLIGRAM, QD (STRENGTH 1 MG)
     Route: 065
     Dates: start: 202201
  2. ENVARSUS XR [Suspect]
     Active Substance: TACROLIMUS
     Dosage: 5 MILLIGRAM, QD (STRENGTH 4 MG)
     Route: 065
     Dates: start: 202201
  3. ENVARSUS XR [Suspect]
     Active Substance: TACROLIMUS
     Dosage: 3 MILLIGRAM, QD
     Route: 065
     Dates: start: 20220206

REACTIONS (3)
  - Immunosuppressant drug level increased [Unknown]
  - Diarrhoea [Unknown]
  - Vomiting [Unknown]

NARRATIVE: CASE EVENT DATE: 20220205
